FAERS Safety Report 12526646 (Version 2)
Quarter: 2016Q3

REPORT INFORMATION
  Report Type: Spontaneous
  Country: US (occurrence: US)
  Receive Date: 20160705
  Receipt Date: 20160801
  Transmission Date: 20161109
  Serious: No
  Sender: FDA-Public Use
  Company Number: US-BAYER-2016-123935

PATIENT
  Age: 91 Year
  Sex: Male

DRUGS (2)
  1. COLACE [Concomitant]
     Active Substance: DOCUSATE SODIUM
     Dosage: UNK
  2. MIRALAX [Suspect]
     Active Substance: POLYETHYLENE GLYCOL 3350
     Indication: CONSTIPATION
     Dosage: UNK

REACTIONS (3)
  - Urine flow decreased [None]
  - Drug ineffective [None]
  - Adverse reaction [None]
